FAERS Safety Report 4765947-5 (Version None)
Quarter: 2005Q3

REPORT INFORMATION
  Report Type: 
  Country: None (occurrence: None)
  Receive Date: 20050908
  Receipt Date: 20050908
  Transmission Date: 20060218
  Serious: Yes (Hospitalization)
  Sender: FDA-Public Use
  Company Number: None

PATIENT
  Age: 61 Year
  Sex: Female
  Weight: 52.2 kg

DRUGS (8)
  1. AMOXICILLIN [Suspect]
     Indication: SINUSITIS
     Dosage: 3 GMS /DAY?
  2. IBUPROFEN [Suspect]
     Indication: PAIN
     Dosage: 6 TABS/DAY?
  3. PROTONIX [Concomitant]
  4. PROPYLTHIOURACIL [Concomitant]
  5. MESTINON [Concomitant]
  6. ATENOLOL [Concomitant]
  7. CREON [Concomitant]
  8. PERCOCET [Concomitant]

REACTIONS (4)
  - ABDOMINAL PAIN [None]
  - ENDOSCOPY GASTROINTESTINAL ABNORMAL [None]
  - GASTROINTESTINAL DISORDER [None]
  - PANCREATITIS [None]
